FAERS Safety Report 9367346 (Version 2)
Quarter: 2013Q3

REPORT INFORMATION
  Report Type: Spontaneous
  Country: JP (occurrence: JP)
  Receive Date: 20130625
  Receipt Date: 20130718
  Transmission Date: 20140515
  Serious: Yes (Other)
  Sender: FDA-Public Use
  Company Number: JP-PFIZER INC-2013187723

PATIENT
  Sex: Male

DRUGS (2)
  1. CELECOX [Suspect]
     Indication: SERONEGATIVE ARTHRITIS
     Dosage: 100 MG, 2X/DAY
     Route: 048
  2. CELECOX [Suspect]
     Dosage: 500 MG TO 600 MG DAILY IN THE LAST FEW MONTHS
     Route: 048
     Dates: end: 20130620

REACTIONS (9)
  - Haematochezia [Unknown]
  - Stomatitis [Unknown]
  - Skin disorder [Unknown]
  - Visual acuity reduced [Unknown]
  - Gingival swelling [Unknown]
  - Decreased appetite [Unknown]
  - Insomnia [Unknown]
  - Drug effect incomplete [Unknown]
  - Overdose [Unknown]
